FAERS Safety Report 7300113-0 (Version None)
Quarter: 2011Q1

REPORT INFORMATION
  Report Type: 
  Country: None (occurrence: None)
  Receive Date: 20110217
  Receipt Date: 20110210
  Transmission Date: 20110831
  Serious: Yes (Hospitalization)
  Sender: FDA-Public Use
  Company Number: US-US-EMD SERONO, INC.-7041644

PATIENT
  Sex: Female

DRUGS (1)
  1. REBIF [Suspect]
     Indication: PRODUCT USED FOR UNKNOWN INDICATION
     Route: 058
     Dates: start: 20090604

REACTIONS (10)
  - COMPLEX REGIONAL PAIN SYNDROME [None]
  - GAIT DISTURBANCE [None]
  - MENTAL IMPAIRMENT [None]
  - INJECTION SITE ERYTHEMA [None]
  - APHASIA [None]
  - INJECTION SITE DISCOLOURATION [None]
  - PAIN IN EXTREMITY [None]
  - INTERVERTEBRAL DISC PROTRUSION [None]
  - FALL [None]
  - INFLUENZA LIKE ILLNESS [None]
